FAERS Safety Report 17641625 (Version 2)
Quarter: 2020Q2

REPORT INFORMATION
  Report Type: Spontaneous
  Country: US (occurrence: US)
  Receive Date: 20200408
  Receipt Date: 20200410
  Transmission Date: 20200713
  Serious: Yes (Life-Threatening, Hospitalization, Other)
  Sender: FDA-Public Use
  Company Number: US-HIKMA PHARMACEUTICALS USA INC.-US-H14001-20-01544

PATIENT
  Age: 79 Year
  Sex: Female

DRUGS (1)
  1. LIDOCAINE. [Suspect]
     Active Substance: LIDOCAINE
     Indication: LOCAL ANAESTHESIA
     Route: 058

REACTIONS (4)
  - Unresponsive to stimuli [Recovered/Resolved]
  - Heart rate abnormal [Recovering/Resolving]
  - Hypotension [Recovered/Resolved]
  - Local anaesthetic systemic toxicity [Recovered/Resolved]
